FAERS Safety Report 24656315 (Version 1)
Quarter: 2024Q4

REPORT INFORMATION
  Report Type: Spontaneous
  Country: US (occurrence: US)
  Receive Date: 20241124
  Receipt Date: 20241124
  Transmission Date: 20250115
  Serious: Yes (Other)
  Sender: AMGEN
  Company Number: US-AMGEN-USASP2024227332

PATIENT
  Age: 17 Year
  Sex: Female

DRUGS (3)
  1. BEVACIZUMAB [Suspect]
     Active Substance: BEVACIZUMAB
     Indication: Ovarian Sertoli-Leydig cell tumour
     Dosage: UNK
     Route: 065
  2. CISPLATIN [Concomitant]
     Active Substance: CISPLATIN
     Dosage: UNK
     Route: 065
  3. TALAZOPARIB [Concomitant]
     Active Substance: TALAZOPARIB
     Dosage: UNK
     Route: 065

REACTIONS (2)
  - Ovarian Sertoli-Leydig cell tumour [Unknown]
  - Off label use [Unknown]
